FAERS Safety Report 10315024 (Version 1)
Quarter: 2014Q3

REPORT INFORMATION
  Report Type: Report from Study
  Country: BR (occurrence: BR)
  Receive Date: 20140718
  Receipt Date: 20140718
  Transmission Date: 20150326
  Serious: Yes (Other)
  Sender: FDA-Public Use
  Company Number: PHHY2014BR088162

PATIENT
  Sex: Female
  Weight: 46.9 kg

DRUGS (9)
  1. CARVEDILOL. [Concomitant]
     Active Substance: CARVEDILOL
     Indication: HYPERTENSION
     Dosage: 2 DF, DAILY (1 TABLET IN THE MORNING AND 1 TABLET AT NIGHT)
  2. METFORMIN [Concomitant]
     Active Substance: METFORMIN HYDROCHLORIDE
     Dosage: 3 DF, DAILY (3 TABLET OF 500 MG DAILY)
  3. METFORMIN [Concomitant]
     Active Substance: METFORMIN HYDROCHLORIDE
     Indication: DIABETES MELLITUS
     Dosage: 0.5 DF, DAILY (HALF TABLET OF 850 MG DAILY)
  4. MACRODANTIN [Concomitant]
     Active Substance: NITROFURANTOIN
     Indication: CYSTITIS INTERSTITIAL
     Dosage: 1 DF, QD (AT NIGHT)
  5. EXELON PATCH [Suspect]
     Active Substance: RIVASTIGMINE
     Indication: MEMORY IMPAIRMENT
     Dosage: 4.6 MG, DAILY (5 CM2)
     Route: 062
  6. DIOVAN [Suspect]
     Active Substance: VALSARTAN
     Indication: HYPERTENSION
     Dosage: 1 DF, DAILY (1 TABLET OF 320 MG DAILY)
  7. SIMVASTATIN. [Concomitant]
     Active Substance: SIMVASTATIN
     Indication: BLOOD CHOLESTEROL ABNORMAL
     Dosage: 0.5 DF, DAILY
  8. DIOVAN [Suspect]
     Active Substance: VALSARTAN
     Dosage: 1 DF, DAILY (1 TABLET OF 160 MG DAILY)
  9. JANUVIA [Concomitant]
     Active Substance: SITAGLIPTIN PHOSPHATE
     Indication: DIABETES MELLITUS
     Dosage: 1 DF, QD (IN THE MORNING

REACTIONS (6)
  - Presyncope [Recovered/Resolved]
  - Dizziness [Recovered/Resolved]
  - Headache [Recovered/Resolved]
  - Nausea [Recovered/Resolved]
  - Somnolence [Recovered/Resolved]
  - Blindness [Recovered/Resolved]
